FAERS Safety Report 9742474 (Version 1)
Quarter: 2013Q4

REPORT INFORMATION
  Report Type: Spontaneous
  Country: RU (occurrence: RU)
  Receive Date: 20131210
  Receipt Date: 20131210
  Transmission Date: 20140711
  Serious: Yes (Other)
  Sender: FDA-Public Use
  Company Number: RU-ROCHE-1314090

PATIENT
  Age: 53 Year
  Sex: 0

DRUGS (1)
  1. VEMURAFENIB [Suspect]
     Indication: HAIRY CELL LEUKAEMIA
     Dosage: FOR 2 MONTHS
     Route: 065

REACTIONS (2)
  - Toxic skin eruption [Recovered/Resolved]
  - Orchitis [Recovered/Resolved]
